FAERS Safety Report 15605117 (Version 1)
Quarter: 2018Q4

REPORT INFORMATION
  Report Type: Spontaneous
  Country: CN (occurrence: CN)
  Receive Date: 20181112
  Receipt Date: 20181112
  Transmission Date: 20190205
  Serious: Yes (Hospitalization)
  Sender: FDA-Public Use
  Company Number: CN-PFIZER INC-2018448666

PATIENT
  Age: 55 Year
  Sex: Female

DRUGS (2)
  1. CYTOSAR [Suspect]
     Active Substance: CYTARABINE
     Indication: ACUTE LEUKAEMIA
     Dosage: 0.16 G, 1X/DAY
     Route: 041
     Dates: start: 20180919, end: 20180925
  2. AI NUO NING [Suspect]
     Active Substance: IDARUBICIN HYDROCHLORIDE
     Indication: ACUTE LEUKAEMIA
     Dosage: 10 MG, 1X/DAY
     Route: 041
     Dates: start: 20180919, end: 20180919

REACTIONS (2)
  - Cyanosis [Unknown]
  - Pyrexia [Recovering/Resolving]

NARRATIVE: CASE EVENT DATE: 20180923
